FAERS Safety Report 13496868 (Version 6)
Quarter: 2020Q3

REPORT INFORMATION
  Report Type: Report from Study
  Country: PA (occurrence: PA)
  Receive Date: 20170428
  Receipt Date: 20200824
  Transmission Date: 20201102
  Serious: Yes (Other)
  Sender: FDA-Public Use
  Company Number: PHHY2017PA062641

PATIENT
  Sex: Female
  Weight: 54 kg

DRUGS (2)
  1. GILENYA [Suspect]
     Active Substance: FINGOLIMOD HYDROCHLORIDE
     Dosage: 0.5 MG, UNK
     Route: 065
     Dates: start: 20160704
  2. GILENYA [Suspect]
     Active Substance: FINGOLIMOD HYDROCHLORIDE
     Indication: MULTIPLE SCLEROSIS
     Dosage: 0.5 MG, QD
     Route: 048
     Dates: start: 20160628

REACTIONS (14)
  - Fatigue [Not Recovered/Not Resolved]
  - Myalgia [Unknown]
  - Haemoglobin decreased [Unknown]
  - Back pain [Not Recovered/Not Resolved]
  - Asthenia [Not Recovered/Not Resolved]
  - Spinal pain [Unknown]
  - Facial paralysis [Unknown]
  - Multiple sclerosis relapse [Unknown]
  - White blood cell count decreased [Unknown]
  - Facial paralysis [Recovered/Resolved]
  - Dizziness [Unknown]
  - Rhinitis allergic [Unknown]
  - Red blood cell count decreased [Unknown]
  - Eyelid ptosis [Unknown]
